FAERS Safety Report 20725934 (Version 1)
Quarter: 2022Q2

REPORT INFORMATION
  Report Type: Spontaneous
  Country: US (occurrence: None)
  Receive Date: 20220419
  Receipt Date: 20220419
  Transmission Date: 20220721
  Serious: No
  Sender: FDA-Public Use
  Company Number: None

PATIENT
  Age: 72 Year
  Sex: Female
  Weight: 54.98 kg

DRUGS (12)
  1. EVEROLIMUS [Suspect]
     Active Substance: EVEROLIMUS
     Indication: Breast cancer
     Dosage: FREQUENCY : DAILY;?
     Route: 048
     Dates: start: 202202
  2. VITAMIN D3 [Concomitant]
     Active Substance: CHOLECALCIFEROL
  3. CHOLESTYRAMINE LIGHT [Concomitant]
     Active Substance: CHOLESTYRAMINE
  4. FAMOTIDINE [Concomitant]
     Active Substance: FAMOTIDINE
  5. MULTI-VITAMIN DAILY [Concomitant]
  6. PRAVASTATIN SODIUM [Concomitant]
     Active Substance: PRAVASTATIN SODIUM
  7. FASLODEX [Concomitant]
     Active Substance: FULVESTRANT
  8. PROLIA [Concomitant]
     Active Substance: DENOSUMAB
  9. EXEMSTANEM [Concomitant]
  10. ACETEMINOPHEN ORAL [Concomitant]
  11. VITAMIN D3 [Concomitant]
     Active Substance: CHOLECALCIFEROL
  12. ONDANSETRON HCL [Concomitant]
     Active Substance: ONDANSETRON HYDROCHLORIDE

REACTIONS (1)
  - Sepsis [None]

NARRATIVE: CASE EVENT DATE: 20220218
